FAERS Safety Report 12556444 (Version 1)
Quarter: 2016Q3

REPORT INFORMATION
  Report Type: Spontaneous
  Country: TW (occurrence: TW)
  Receive Date: 20160714
  Receipt Date: 20160714
  Transmission Date: 20161109
  Serious: Yes (Hospitalization)
  Sender: FDA-Public Use
  Company Number: TW-MYLANLABS-2016M1028912

PATIENT

DRUGS (2)
  1. QUETIAPINE. [Concomitant]
     Active Substance: QUETIAPINE
     Indication: BIPOLAR I DISORDER
     Dosage: 600 MG DAILY FOR 6 MONTHS
     Route: 065
  2. LITHIUM. [Suspect]
     Active Substance: LITHIUM
     Indication: BIPOLAR I DISORDER
     Dosage: 900 MG DAILY FOR 6 MONTHS
     Route: 065

REACTIONS (12)
  - Ataxia [Recovered/Resolved with Sequelae]
  - Toxicity to various agents [Recovered/Resolved with Sequelae]
  - Blood creatinine increased [Recovered/Resolved]
  - Dyskinesia [Recovered/Resolved with Sequelae]
  - Delirium [Recovered/Resolved with Sequelae]
  - Tremor [Recovered/Resolved with Sequelae]
  - Diarrhoea [Unknown]
  - Antipsychotic drug level above therapeutic [Recovered/Resolved]
  - Dysarthria [Not Recovered/Not Resolved]
  - Depressed level of consciousness [Recovered/Resolved with Sequelae]
  - Pyrexia [Recovered/Resolved]
  - Asthenia [Not Recovered/Not Resolved]
